FAERS Safety Report 14733079 (Version 1)
Quarter: 2018Q2

REPORT INFORMATION
  Report Type: Spontaneous
  Country: US (occurrence: US)
  Receive Date: 20180409
  Receipt Date: 20180409
  Transmission Date: 20180711
  Serious: Yes (Other)
  Sender: FDA-Public Use
  Company Number: US-AUROBINDO-AUR-APU-2017-40176

PATIENT
  Age: 43 Year
  Sex: Female
  Weight: 51.7 kg

DRUGS (2)
  1. AVIL /00085102/ [Suspect]
     Active Substance: PHENIRAMINE MALEATE
     Indication: BURNING SENSATION
  2. SULFAMETHOXAZOLE AND TRIMETHOPRIM TABLETS USP 800/160 MG [Suspect]
     Active Substance: SULFAMETHOXAZOLE\TRIMETHOPRIM
     Indication: URINARY TRACT INFECTION
     Dosage: 2 DF, DAILY (ONE IN THE MORNING, ONE AT NIGHT)
     Route: 065
     Dates: start: 20170902

REACTIONS (1)
  - Abdominal pain upper [Not Recovered/Not Resolved]

NARRATIVE: CASE EVENT DATE: 20170902
